FAERS Safety Report 25063670 (Version 1)
Quarter: 2025Q1

REPORT INFORMATION
  Report Type: Spontaneous
  Country: US (occurrence: US)
  Receive Date: 20250311
  Receipt Date: 20250311
  Transmission Date: 20250409
  Serious: No
  Sender: BLUEPRINT MEDICINES
  Company Number: US-Blueprint Medicines Corporation-2025-AER-00452

PATIENT
  Age: 62 Year
  Sex: Female

DRUGS (1)
  1. AYVAKIT [Suspect]
     Active Substance: AVAPRITINIB
     Indication: Systemic mastocytosis
     Route: 065
     Dates: start: 20250218

REACTIONS (4)
  - Illness [Unknown]
  - Dysstasia [Unknown]
  - Gastrointestinal disorder [Unknown]
  - Nausea [Unknown]

NARRATIVE: CASE EVENT DATE: 20250304
